FAERS Safety Report 4775718-1 (Version None)
Quarter: 2005Q3

REPORT INFORMATION
  Report Type: 
  Country: None (occurrence: None)
  Receive Date: 20050921
  Receipt Date: 20050912
  Transmission Date: 20060218
  Serious: Yes (Hospitalization)
  Sender: FDA-Public Use
  Company Number: GXBR2005US01430

PATIENT
  Age: 51 Year
  Sex: Female

DRUGS (1)
  1. DIPHENOXYLATE HCL AND ATROPINE SULFATE [Suspect]
     Dates: start: 20000101

REACTIONS (2)
  - DEHYDRATION [None]
  - LARGE INTESTINE PERFORATION [None]
